FAERS Safety Report 5465440-0 (Version None)
Quarter: 2007Q3

REPORT INFORMATION
  Report Type: 
  Country: None (occurrence: None)
  Receive Date: 20070920
  Receipt Date: 20070920
  Transmission Date: 20080115
  Serious: Yes (Hospitalization)
  Sender: FDA-Public Use
  Company Number: None

PATIENT
  Age: 26 Year
  Sex: Male
  Weight: 58.514 kg

DRUGS (3)
  1. OXALIPLATIN 85 MG/M25; FLUOUROURACIL 2400MG/M2/46HR [Suspect]
     Indication: GASTRIC CANCER
     Route: 042
     Dates: start: 20070912
  2. LEUCOVORIN 400 MG/M2 [Suspect]
     Indication: GASTRIC CANCER
  3. FLUOROURACIL 2400 MG/M2/46HR [Suspect]

REACTIONS (4)
  - FEEDING TUBE COMPLICATION [None]
  - INFUSION SITE REACTION [None]
  - NAUSEA [None]
  - VOMITING [None]
